FAERS Safety Report 4612841-6 (Version None)
Quarter: 2005Q1

REPORT INFORMATION
  Report Type: 
  Country: None (occurrence: None)
  Receive Date: 20050318
  Receipt Date: 20050316
  Transmission Date: 20050727
  Serious: Yes (Hospitalization, Other)
  Sender: FDA-Public Use
  Company Number: US-JNJFOC-20050104502

PATIENT
  Sex: Female

DRUGS (10)
  1. LEVAQUIN [Suspect]
     Indication: SINUSITIS
  2. AMOXICILLIN [Concomitant]
     Indication: SINUSITIS
  3. METFORMIN HCL [Concomitant]
  4. ACCUPRIL [Concomitant]
  5. SPIRONOLACTONE [Concomitant]
  6. SPRINTEC [Concomitant]
  7. ADVIL [Concomitant]
  8. TUMS [Concomitant]
  9. BENADRYL [Concomitant]
  10. SUDAFED 12 HOUR [Concomitant]

REACTIONS (3)
  - RASH [None]
  - RENAL FAILURE ACUTE [None]
  - SARCOIDOSIS [None]
